FAERS Safety Report 20847294 (Version 1)
Quarter: 2022Q2

REPORT INFORMATION
  Report Type: Spontaneous
  Country: US (occurrence: US)
  Receive Date: 20220519
  Receipt Date: 20220519
  Transmission Date: 20220721
  Serious: No
  Sender: FDA-Public Use
  Company Number: CID000000000024247

PATIENT
  Age: 75 Year
  Sex: Female

DRUGS (1)
  1. HYDRALAZINE HYDROCHLORIDE [Suspect]
     Active Substance: HYDRALAZINE HYDROCHLORIDE
     Indication: Hypertension
     Dosage: 150 MILLIGRAM DAILY; FORM STRENGTH: 50MG, 3 TIMES A DAY, ROUT OF ADMIN:UNKNOWN
     Route: 065
     Dates: end: 20220314

REACTIONS (10)
  - Cough [Recovered/Resolved]
  - Bone contusion [Recovered/Resolved]
  - Headache [Recovered/Resolved]
  - Pain in jaw [Recovered/Resolved]
  - Lip exfoliation [Recovered/Resolved]
  - Malaise [Recovered/Resolved]
  - Impaired work ability [Recovered/Resolved]
  - Speech disorder [Recovered/Resolved]
  - Oropharyngeal discomfort [Recovered/Resolved]
  - Skin exfoliation [Recovered/Resolved]

NARRATIVE: CASE EVENT DATE: 20220301
